FAERS Safety Report 9747105 (Version 1)
Quarter: 2013Q4

REPORT INFORMATION
  Report Type: Spontaneous
  Country: MX (occurrence: MX)
  Receive Date: 20131211
  Receipt Date: 20131211
  Transmission Date: 20140711
  Serious: Yes (Other)
  Sender: FDA-Public Use
  Company Number: PHHY2013MX141000

PATIENT
  Age: 73 Year
  Sex: Female

DRUGS (3)
  1. VIVENDAL [Suspect]
     Indication: BLOOD TRIGLYCERIDES ABNORMAL
     Dosage: 320 MG, UNK
     Route: 048
     Dates: start: 201302, end: 201302
  2. VIVENDAL [Suspect]
     Indication: HYPERTENSION
  3. ASPIRINA PROTECT [Suspect]

REACTIONS (4)
  - Fall [Unknown]
  - Joint injury [Unknown]
  - Malaise [Recovered/Resolved]
  - Dizziness [Unknown]
